FAERS Safety Report 8088369-0 (Version None)
Quarter: 2012Q1

REPORT INFORMATION
  Report Type: 
  Country: None (occurrence: None)
  Receive Date: 20120128
  Receipt Date: 20110606
  Transmission Date: 20120608
  Serious: No
  Sender: FDA-Public Use
  Company Number: US-ABBOTT-11P-163-0730667-00

PATIENT
  Age: 54 Year
  Sex: Female

DRUGS (4)
  1. CELEXA [Concomitant]
     Indication: DEPRESSION
  2. SEROQUEL [Concomitant]
     Indication: INSOMNIA
  3. HUMIRA [Suspect]
     Indication: PSORIASIS
     Dates: start: 20110330
  4. XANAX [Concomitant]
     Indication: PANIC ATTACK

REACTIONS (3)
  - ABASIA [None]
  - SKIN HAEMORRHAGE [None]
  - PSORIASIS [None]
